FAERS Safety Report 4370929-1 (Version None)
Quarter: 2004Q2

REPORT INFORMATION
  Report Type: 
  Country: None (occurrence: None)
  Receive Date: 20040601
  Receipt Date: 20040513
  Transmission Date: 20050107
  Serious: Yes (Hospitalization)
  Sender: FDA-Public Use
  Company Number: DSA_24062_2004

PATIENT
  Age: 92 Year
  Sex: Female

DRUGS (5)
  1. TILDIEM [Suspect]
     Indication: ESSENTIAL HYPERTENSION
     Dosage: 60 MG BID PO
     Route: 048
     Dates: start: 20030915
  2. LORAZEPAM [Suspect]
     Dosage: 1 MG QD PO
     Route: 048
  3. CALCIDOSE [Suspect]
     Dosage: 1  UNK QD PO
     Route: 048
  4. HEMIGOXINE NATIVELLE [Suspect]
     Indication: ATRIAL FIBRILLATION
     Dosage: 0.125 MG Q DAY PO
     Route: 048
  5. KARDEGIC                                             /FRA/ [Suspect]
     Dosage: 1 UNK QD PO
     Route: 048

REACTIONS (3)
  - FALL [None]
  - ORTHOSTATIC HYPOTENSION [None]
  - PARKINSON'S DISEASE [None]
